FAERS Safety Report 5005373-7 (Version None)
Quarter: 2006Q2

REPORT INFORMATION
  Report Type: 
  Country: None (occurrence: None)
  Receive Date: 20060518
  Receipt Date: 20060220
  Transmission Date: 20061013
  Serious: Yes (Hospitalization)
  Sender: FDA-Public Use
  Company Number: US-MERCK-0602USA05105

PATIENT
  Age: 60 Year
  Sex: Male
  Weight: 86 kg

DRUGS (7)
  1. VIOXX [Suspect]
     Indication: OSTEOARTHRITIS
     Route: 048
     Dates: start: 19980101, end: 20020801
  2. VIOXX [Suspect]
     Route: 048
     Dates: start: 19980101, end: 20020801
  3. VIOXX [Suspect]
     Indication: ARTHRALGIA
     Route: 048
     Dates: start: 19980101, end: 20020801
  4. VIOXX [Suspect]
     Route: 048
     Dates: start: 19980101, end: 20020801
  5. ASPIRIN [Concomitant]
     Indication: OSTEOARTHRITIS
     Route: 048
  6. ASPIRIN [Concomitant]
     Indication: PAIN
     Route: 048
  7. ATENOLOL [Concomitant]
     Indication: ESSENTIAL HYPERTENSION
     Route: 065
     Dates: start: 19900101

REACTIONS (3)
  - BLOOD PRESSURE SYSTOLIC INCREASED [None]
  - CEREBRAL INFARCTION [None]
  - CEREBROVASCULAR ACCIDENT [None]
